FAERS Safety Report 5503968-5 (Version None)
Quarter: 2007Q4

REPORT INFORMATION
  Report Type: 
  Country: None (occurrence: None)
  Receive Date: 20071030
  Receipt Date: 20071030
  Transmission Date: 20080405
  Serious: Yes (Hospitalization)
  Sender: FDA-Public Use
  Company Number: None

PATIENT
  Age: 78 Year
  Sex: Male

DRUGS (2)
  1. LEVOFLOXACIN [Suspect]
     Indication: CELLULITIS
     Dosage: 250MG   EVERY DAY  IV
     Route: 042
     Dates: start: 20071014, end: 20071024
  2. MEROPENEM [Suspect]
     Indication: CELLULITIS
     Dosage: 500MG  OTHER  IV
     Route: 042
     Dates: start: 20071009, end: 20071016

REACTIONS (1)
  - CLOSTRIDIUM DIFFICILE COLITIS [None]
